FAERS Safety Report 13973917 (Version 1)
Quarter: 2017Q3

REPORT INFORMATION
  Report Type: Spontaneous
  Country: JP (occurrence: JP)
  Receive Date: 20170915
  Receipt Date: 20170915
  Transmission Date: 20171128
  Serious: Yes (Hospitalization)
  Sender: FDA-Public Use
  Company Number: JP-PFIZER INC-2017392978

PATIENT
  Age: 1 Year
  Sex: Female

DRUGS (1)
  1. GENOTROPIN GOQUICK 5.3MG [Suspect]
     Active Substance: SOMATROPIN

REACTIONS (1)
  - Meningitis [Unknown]
